FAERS Safety Report 4374270-2 (Version None)
Quarter: 2004Q2

REPORT INFORMATION
  Report Type: 
  Country: None (occurrence: None)
  Receive Date: 20040604
  Receipt Date: 20040407
  Transmission Date: 20050107
  Serious: Yes (Other)
  Sender: FDA-Public Use
  Company Number: SUS1-2004-00221

PATIENT
  Age: 84 Year
  Sex: Female

DRUGS (2)
  1. AGRYLIN (ANAGRELIDE HYDROCHLORIDE) CAPSULE [Suspect]
     Indication: PLATELET COUNT INCREASED
     Dosage: SEE IMAGE
  2. SYNTHROID [Concomitant]

REACTIONS (9)
  - ABDOMINAL DISCOMFORT [None]
  - ABDOMINAL PAIN UPPER [None]
  - ASTHENIA [None]
  - DIALYSIS [None]
  - DYSPNOEA [None]
  - HEART RATE INCREASED [None]
  - INTESTINAL MASS [None]
  - POST PROCEDURAL HAEMORRHAGE [None]
  - RENAL FAILURE ACUTE [None]
